FAERS Safety Report 10213671 (Version 1)
Quarter: 2014Q2

REPORT INFORMATION
  Report Type: Spontaneous
  Country: US (occurrence: None)
  Receive Date: 20140530
  Receipt Date: 20140530
  Transmission Date: 20141212
  Serious: Yes (Hospitalization)
  Sender: FDA-Public Use
  Company Number: 2014050086

PATIENT
  Age: 88 Year
  Sex: Female
  Weight: 56.25 kg

DRUGS (3)
  1. GERITOL [Suspect]
     Indication: ROUTINE HEALTH MAINTENANCE
     Route: 048
     Dates: start: 1954, end: 201401
  2. COUMADIN [Concomitant]
  3. LIPITOR (ATORVASTATIN) [Concomitant]

REACTIONS (1)
  - Cerebrovascular accident [None]
